FAERS Safety Report 9546529 (Version 1)
Quarter: 2013Q3

REPORT INFORMATION
  Report Type: Report from Study
  Country: US (occurrence: US)
  Receive Date: 20130923
  Receipt Date: 20130923
  Transmission Date: 20140515
  Serious: Yes (Hospitalization)
  Sender: FDA-Public Use
  Company Number: US-EXELIXIS-XL18413003287

PATIENT
  Age: 37 Year
  Sex: Female
  Weight: 39.2 kg

DRUGS (9)
  1. XL184 [Suspect]
     Indication: THYROID CANCER
     Dosage: 40 MG, QD
     Route: 048
     Dates: start: 20130507
  2. AMLODIPINE [Concomitant]
  3. LEVETIRACETAM [Concomitant]
  4. DIPHENOXYLATE W/ATROPINE SULFATE [Concomitant]
  5. KETOROLAC [Concomitant]
  6. FLUTICASONE [Concomitant]
  7. SYNTHROID [Concomitant]
  8. LORAZEPAM [Concomitant]
  9. PREDNISONE [Concomitant]

REACTIONS (1)
  - Convulsion [Unknown]
